FAERS Safety Report 17241192 (Version 1)
Quarter: 2020Q1

REPORT INFORMATION
  Report Type: Spontaneous
  Country: DE (occurrence: DE)
  Receive Date: 20200107
  Receipt Date: 20200107
  Transmission Date: 20200409
  Serious: Yes (Death, Life-Threatening, Hospitalization, Other)
  Sender: FDA-Public Use
  Company Number: DE-TEVA-2019-DE-1162120

PATIENT
  Age: 83 Year
  Sex: Male

DRUGS (33)
  1. LEUCOVORINE [Suspect]
     Active Substance: LEUCOVORIN
     Indication: PANCREATIC CARCINOMA METASTATIC
     Dosage: 808 MG, QCY
     Route: 042
     Dates: start: 20180601, end: 20180601
  2. FLUOROURACIL. [Suspect]
     Active Substance: FLUOROURACIL
     Dosage: 4848 MG, QCY
     Route: 042
     Dates: start: 20180609, end: 20180609
  3. HALOPERIDOL. [Concomitant]
     Active Substance: HALOPERIDOL
     Indication: AGITATION
     Dosage: UNK
     Dates: start: 20180606, end: 20180607
  4. FLUMAZENIL. [Concomitant]
     Active Substance: FLUMAZENIL
     Indication: ALTERED STATE OF CONSCIOUSNESS
     Dosage: UNK
     Dates: start: 20180608, end: 20180608
  5. FLUOROURACIL. [Suspect]
     Active Substance: FLUOROURACIL
     Indication: PANCREATIC CARCINOMA METASTATIC
     Dosage: 808 MG, QCY
     Route: 040
     Dates: start: 20180603, end: 20180603
  6. FLUOROURACIL. [Suspect]
     Active Substance: FLUOROURACIL
     Dosage: 808 MG, QCY
     Route: 040
     Dates: start: 20180601, end: 20180601
  7. TORASEMID [Concomitant]
     Active Substance: TORSEMIDE
     Indication: CARDIAC FAILURE
     Dosage: UNK
     Dates: start: 20180528, end: 20180607
  8. SULBACTAM [Concomitant]
     Active Substance: SULBACTAM
     Dosage: UNK
     Dates: start: 20180608, end: 20180611
  9. ONDANSETRON [Concomitant]
     Active Substance: ONDANSETRON
     Indication: NAUSEA
     Dosage: UNK
     Dates: start: 20180607, end: 20180609
  10. SPIRONOLACTONE. [Concomitant]
     Active Substance: SPIRONOLACTONE
     Indication: ASCITES
     Dosage: UNK
     Dates: start: 20180530, end: 20180603
  11. MORPHINE [Concomitant]
     Active Substance: MORPHINE
     Indication: PANCREATIC CARCINOMA METASTATIC
     Dosage: UNK
     Dates: start: 20180527
  12. ADDAVEN [Concomitant]
     Active Substance: ELECTROLYTES NOS\MINERALS
     Dosage: UNK
     Dates: start: 20180603, end: 20180608
  13. MCP ABZ [Concomitant]
     Indication: NAUSEA
     Dosage: UNK
     Dates: start: 20180530, end: 20180605
  14. NUTRIFLEX LIPID [AMINO ACIDS NOS;CARBOHYDRATES NOS;ELECTROLYTES NOS;LI [Concomitant]
     Dosage: UNK
     Dates: start: 20180604, end: 20180607
  15. OXALIPLATIN. [Suspect]
     Active Substance: OXALIPLATIN
     Indication: PANCREATIC CARCINOMA METASTATIC
     Dosage: 172 MG, QCY
     Route: 042
     Dates: start: 20180601, end: 20180601
  16. JONOSTERIL [CALCIUM CHLORIDE DIHYDRATE;POTASSIUM CHLORIDE;SODIUM LACTA [Concomitant]
     Dosage: UNK
     Dates: start: 20180609, end: 20180611
  17. SALVIATHYMOL [Concomitant]
     Dosage: UNK
     Dates: start: 20180611
  18. MIRTAZAPIN [Concomitant]
     Active Substance: MIRTAZAPINE
     Indication: AGITATION
     Dosage: UNK
     Dates: start: 20180603, end: 20180610
  19. NOVALGIN (METAMIZOLE SODIUM) [Concomitant]
     Active Substance: METAMIZOLE SODIUM
     Indication: PANCREATIC CARCINOMA METASTATIC
     Dosage: UNK
     Dates: start: 20180525, end: 20180605
  20. FLUOROURACIL. [Suspect]
     Active Substance: FLUOROURACIL
     Dosage: 4848 MG, QCY
     Route: 042
     Dates: start: 20180601, end: 20180601
  21. MONO EMBOLEX [Concomitant]
     Active Substance: CERTOPARIN SODIUM
     Indication: THROMBOSIS PROPHYLAXIS
     Dosage: UNK
     Dates: start: 20180518, end: 20180608
  22. AMPICILLIN [Concomitant]
     Active Substance: AMPICILLIN
     Dosage: UNK
     Dates: start: 20180608, end: 20180611
  23. NORSPAN [Concomitant]
     Active Substance: BUPRENORPHINE
     Indication: PAIN
     Dosage: UNK
     Dates: start: 20180605, end: 20180605
  24. DIMENHYDRINATE. [Concomitant]
     Active Substance: DIMENHYDRINATE
     Indication: NAUSEA
     Dosage: UNK
     Dates: start: 20180602, end: 20180608
  25. PANTOPRAZOLE [Concomitant]
     Active Substance: PANTOPRAZOLE
     Dosage: UNK
     Dates: start: 20180115, end: 20180611
  26. GLANDOMED [Concomitant]
     Dosage: UNK
     Dates: start: 20180611
  27. NOVAMINSULFON [Concomitant]
     Active Substance: METAMIZOLE
     Indication: PAIN
     Dosage: UNK
     Dates: start: 20180115, end: 20180605
  28. BUPREN [Concomitant]
     Dosage: UNK
     Dates: start: 20180606, end: 20180611
  29. METOPROLOL. [Concomitant]
     Active Substance: METOPROLOL
     Indication: HYPERTENSION
     Dosage: UNK
  30. SPIRONOLACTONE. [Concomitant]
     Active Substance: SPIRONOLACTONE
     Indication: CARDIAC FAILURE
     Dosage: UNK
     Dates: start: 20180518
  31. DEXAMETHASONE. [Concomitant]
     Active Substance: DEXAMETHASONE
     Dosage: UNK
     Dates: start: 20180607, end: 20180607
  32. LAXANS [BISACODYL] [Concomitant]
     Indication: CONSTIPATION PROPHYLAXIS
     Dosage: UNK
     Dates: start: 20180527, end: 20180605
  33. AMPHO-MORONAL [Concomitant]
     Active Substance: AMPHOTERICIN B
     Indication: MUCOSAL INFLAMMATION

REACTIONS (3)
  - Sepsis [Fatal]
  - Stomatitis [Not Recovered/Not Resolved]
  - Condition aggravated [Not Recovered/Not Resolved]

NARRATIVE: CASE EVENT DATE: 20180610
